FAERS Safety Report 9608560 (Version 3)
Quarter: 2014Q1

REPORT INFORMATION
  Report Type: Report from Study
  Country: US (occurrence: US)
  Receive Date: 20131009
  Receipt Date: 20140119
  Transmission Date: 20141002
  Serious: Yes (Death)
  Sender: FDA-Public Use
  Company Number: US-ROCHE-1285924

PATIENT
  Age: 62 Year
  Sex: Male

DRUGS (6)
  1. LUCENTIS [Suspect]
     Indication: DIABETIC RETINOPATHY
     Dosage: DOSAGE:LEFT EYE
     Route: 050
     Dates: start: 20130911
  2. LUCENTIS [Suspect]
     Indication: RETINAL OEDEMA
  3. LUCENTIS [Suspect]
     Indication: RETINAL VEIN OCCLUSION
  4. LISINOPRIL [Concomitant]
  5. GLIPIZIDE [Concomitant]
  6. ZYMAXID [Concomitant]
     Dosage: GIVEN AFTER LUCENTIS INJECTION
     Route: 065

REACTIONS (8)
  - Pulmonary embolism [Fatal]
  - Vasculitis [Fatal]
  - Tremor [Unknown]
  - Dehydration [Unknown]
  - White blood cell count increased [Unknown]
  - Blood creatine phosphokinase increased [Unknown]
  - Feeling abnormal [Recovered/Resolved]
  - Electrocardiogram abnormal [Unknown]
